FAERS Safety Report 7779038-2 (Version None)
Quarter: 2011Q3

REPORT INFORMATION
  Report Type: 
  Country: None (occurrence: None)
  Receive Date: 20110926
  Receipt Date: 20110228
  Transmission Date: 20111222
  Serious: No
  Sender: FDA-Public Use
  Company Number: US-BAYER-2011-019285

PATIENT
  Age: 67 Year
  Sex: Female

DRUGS (2)
  1. ULTRAVIST 150 [Suspect]
     Route: 042
  2. BENADRYL [Suspect]
     Dosage: 50 MG, UNK
     Route: 042

REACTIONS (1)
  - URTICARIA [None]
